FAERS Safety Report 25407860 (Version 1)
Quarter: 2025Q2

REPORT INFORMATION
  Report Type: Spontaneous
  Country: US (occurrence: US)
  Receive Date: 20250606
  Receipt Date: 20250606
  Transmission Date: 20250716
  Serious: Yes (Hospitalization)
  Sender: TAKEDA
  Company Number: US-TAKEDA-2025TUS052395

PATIENT
  Sex: Male
  Weight: 101 kg

DRUGS (4)
  1. VELCADE [Suspect]
     Active Substance: BORTEZOMIB
     Indication: Plasma cell myeloma
  2. TELMISARTAN [Concomitant]
     Active Substance: TELMISARTAN
     Indication: Blood pressure measurement
     Dosage: 40 MILLIGRAM, QD
  3. METFORMIN [Concomitant]
     Active Substance: METFORMIN HYDROCHLORIDE
     Indication: Glucose tolerance impaired
     Dosage: 500 MILLIGRAM, BID
  4. LENALIDOMIDE [Concomitant]
     Active Substance: LENALIDOMIDE
     Indication: Plasma cell myeloma

REACTIONS (9)
  - Hyperhidrosis [Unknown]
  - Muscle atrophy [Unknown]
  - Fall [Unknown]
  - Confusional state [Unknown]
  - Headache [Unknown]
  - Nausea [Unknown]
  - Pyrexia [Unknown]
  - Fatigue [Unknown]
  - Hypotension [Unknown]
